FAERS Safety Report 7553591-6 (Version None)
Quarter: 2011Q2

REPORT INFORMATION
  Report Type: 
  Country: None (occurrence: None)
  Receive Date: 20110617
  Receipt Date: 20110607
  Transmission Date: 20111010
  Serious: Yes (Other)
  Sender: FDA-Public Use
  Company Number: US-JNJFOC-20110605256

PATIENT
  Sex: Female
  Weight: 63.05 kg

DRUGS (6)
  1. ZEMPLAR [Concomitant]
     Indication: PARATHYROID DISORDER
     Route: 048
  2. SENSIPAR [Concomitant]
     Indication: PARATHYROID DISORDER
     Route: 048
  3. GENTAMICIN [Concomitant]
     Indication: INFECTION
     Route: 033
     Dates: start: 20110501
  4. ACTOS [Concomitant]
     Route: 065
  5. LEVAQUIN [Suspect]
     Indication: PERITONEAL INFECTION
     Route: 048
     Dates: start: 20110528, end: 20110603
  6. LEVAQUIN [Suspect]
     Indication: SKIN INFECTION
     Route: 048
     Dates: start: 20110528, end: 20110603

REACTIONS (4)
  - CONFUSIONAL STATE [None]
  - FALL [None]
  - DRUG PRESCRIBING ERROR [None]
  - INSOMNIA [None]
